FAERS Safety Report 8339019-7 (Version None)
Quarter: 2012Q2

REPORT INFORMATION
  Report Type: 
  Country: None (occurrence: None)
  Receive Date: 20120507
  Receipt Date: 20120425
  Transmission Date: 20120825
  Serious: Yes (Death)
  Sender: FDA-Public Use
  Company Number: JP-BRISTOL-MYERS SQUIBB COMPANY-16511263

PATIENT
  Age: 94 Year
  Sex: Female

DRUGS (5)
  1. INSULIN [Concomitant]
     Route: 042
  2. JANUVIA [Concomitant]
  3. ABILIFY [Suspect]
     Indication: SCHIZOPHRENIA
     Route: 048
  4. RISPERDAL [Concomitant]
  5. AMARYL [Concomitant]
     Dosage: 1DF= TABS;DISCONTINUED

REACTIONS (2)
  - BLOOD GLUCOSE INCREASED [None]
  - PNEUMONIA [None]
